FAERS Safety Report 7380016-6 (Version None)
Quarter: 2011Q1

REPORT INFORMATION
  Report Type: 
  Country: None (occurrence: None)
  Receive Date: 20110318
  Receipt Date: 20110308
  Transmission Date: 20110831
  Serious: Yes (Hospitalization)
  Sender: FDA-Public Use
  Company Number: WAES 1103USA01150

PATIENT
  Age: 74 Year
  Sex: Male

DRUGS (2)
  1. ELOTUZUMAB [Suspect]
     Indication: MULTIPLE MYELOMA
     Dosage: 20 MG/KG
     Route: 042
     Dates: start: 20100623, end: 20100101
  2. DECADRON [Suspect]
     Indication: MULTIPLE MYELOMA
     Dosage: 40 MG
     Dates: start: 20100630, end: 20100101

REACTIONS (2)
  - ASPERGILLOSIS [None]
  - LUNG DISORDER [None]
